FAERS Safety Report 6984411 (Version 4)
Quarter: 2012Q4

REPORT INFORMATION
  Report Type: 
  Country: DE (occurrence: FR)
  Receive Date: 20090501
  Receipt Date: 20121005
  Transmission Date: 20130627
  Serious: Yes (Hospitalization, Other)
  Sender: FDA-Public Use
  Company Number: FR-ALEXION-A200800182

PATIENT
  Age: 42 None
  Sex: Female
  Weight: 54 kg

DRUGS (25)
  1. SOLIRIS 300MG [Suspect]
     Dosage: 900 mg, qw
     Route: 042
     Dates: start: 20080708, end: 20080731
  2. SOLIRIS 300MG [Suspect]
     Dosage: 1200 mg, q2w
     Route: 042
  3. NOMEGESTROL [Suspect]
     Dosage: UNK
     Route: 048
     Dates: end: 20080723
  4. AMLOR [Suspect]
     Indication: HYPERTENSION
     Dosage: 5 mg, qd
     Dates: start: 20080630, end: 20080704
  5. AMLOR [Suspect]
     Dosage: 10 mg, qd
     Dates: start: 20080704, end: 20080723
  6. BACTRIM [Suspect]
     Dosage: 0.5 DF, qd
     Route: 048
  7. BACTRIM [Suspect]
     Dosage: 4 DF, qd
     Route: 048
     Dates: start: 20080616, end: 20080715
  8. RAPAMUNE [Concomitant]
     Indication: PROPHYLAXIS AGAINST TRANSPLANT REJECTION
     Dosage: 2 mg, qd
     Route: 048
  9. RAPAMUNE [Concomitant]
     Dosage: 3 mg, qd
     Route: 048
     Dates: start: 20080604, end: 20080618
  10. RAPAMUNE [Concomitant]
     Dosage: 4 mg, qd
     Dates: start: 20080618
  11. MYFORTIC [Concomitant]
     Indication: PROPHYLAXIS AGAINST TRANSPLANT REJECTION
     Dosage: 720 mg, bid
  12. CORTANCYL [Concomitant]
     Indication: PROPHYLAXIS AGAINST TRANSPLANT REJECTION
     Dosage: 60 mg, qd
     Route: 048
     Dates: end: 20080723
  13. CORTANCYL [Concomitant]
     Dosage: 30 mg, qd
     Route: 048
     Dates: start: 20080723
  14. TAHOR [Concomitant]
     Indication: HYPERCHOLESTEROLAEMIA
     Dosage: 40 DF, qd
     Route: 048
     Dates: start: 20080530
  15. DEROXAT [Concomitant]
     Dosage: 20 mg, qd
     Route: 048
  16. INEXIUM [Concomitant]
     Dosage: 20 DF, qd
     Route: 048
     Dates: start: 20080611
  17. SODIUM BICARBONATE [Concomitant]
     Indication: ACIDOSIS
     Dosage: 4 g, qd
     Route: 048
     Dates: end: 20080715
  18. SODIUM BICARBONATE [Concomitant]
     Dosage: 6 g, qd
     Route: 048
     Dates: start: 20080715
  19. ARANESP [Concomitant]
     Indication: ANAEMIA
     Dosage: 60 ?g, qw
     Route: 058
  20. CIFLOX [Concomitant]
     Indication: PROPHYLAXIS
     Dosage: 500 mg, qd
     Route: 048
     Dates: start: 20080708, end: 20080715
  21. ROVALCYTE [Concomitant]
     Indication: ORAL CANDIDIASIS
     Dosage: 450 Q2days
     Route: 048
     Dates: start: 20080702
  22. STILNOX [Concomitant]
     Dosage: 1 DF, qd
     Route: 048
  23. KALEORID [Concomitant]
     Dosage: 100 DF, qd
     Dates: start: 20080715
  24. COTRIMOXAZOLE [Concomitant]
     Dosage: UNK
  25. CONTRACEPTIVES NOS [Concomitant]
     Dosage: UNK

REACTIONS (10)
  - Haemolytic uraemic syndrome [Recovered/Resolved]
  - Condition aggravated [Recovered/Resolved]
  - Chest pain [Recovered/Resolved]
  - Oedema [Recovered/Resolved]
  - Renal impairment [Unknown]
  - Anaemia [Not Recovered/Not Resolved]
  - Haemoglobin decreased [Not Recovered/Not Resolved]
  - Haemolysis [Unknown]
  - Headache [Recovered/Resolved]
  - Metrorrhagia [Recovered/Resolved]
